FAERS Safety Report 5707281-2 (Version None)
Quarter: 2008Q2

REPORT INFORMATION
  Report Type: 
  Country: None (occurrence: None)
  Receive Date: 20080416
  Receipt Date: 20080408
  Transmission Date: 20081010
  Serious: Yes (Hospitalization, Other)
  Sender: FDA-Public Use
  Company Number: PHEH2008US03325

PATIENT
  Sex: Female

DRUGS (3)
  1. LOTREL [Suspect]
     Dosage: 10 MG AML, 20 MG BEN, QD
     Route: 048
     Dates: start: 20070101
  2. LOTREL [Suspect]
     Dosage: 10 MG AML, 40 MG BEN, QD
     Route: 048
     Dates: end: 20080317
  3. LOTREL [Suspect]
     Route: 048
     Dates: start: 20080331, end: 20080401

REACTIONS (4)
  - COUGH [None]
  - HAEMOPTYSIS [None]
  - HAEMORRHAGE [None]
  - PHARYNGITIS [None]
